FAERS Safety Report 25925919 (Version 1)
Quarter: 2025Q4

REPORT INFORMATION
  Report Type: Spontaneous
  Country: US (occurrence: None)
  Receive Date: 20251014
  Receipt Date: 20251014
  Transmission Date: 20260117
  Serious: Yes (Hospitalization)
  Sender: FDA-CTU
  Company Number: None

PATIENT
  Age: 8 Year
  Sex: Female

DRUGS (8)
  1. PULMOZYME [Suspect]
     Active Substance: DORNASE ALFA
     Indication: Cystic fibrosis
     Dosage: 2.5 ML DAILY RESPIRATORY (INHALATION)?
     Route: 055
     Dates: start: 20230711
  2. CREON [Suspect]
     Active Substance: PANCRELIPASE AMYLASE\PANCRELIPASE LIPASE\PANCRELIPASE PROTEASE
     Indication: Cystic fibrosis
     Dosage: 6 CAPS  TID AND 3 CPS TID
     Route: 048
     Dates: start: 20230113
  3. DIETARY SUPPLEMENT [Concomitant]
     Active Substance: DIETARY SUPPLEMENT
  4. SODIUM CHLORIDE [Concomitant]
     Active Substance: SODIUM CHLORIDE
  5. KITABIS PAK [Concomitant]
     Active Substance: TOBRAMYCIN
  6. RIFABUTIN [Concomitant]
     Active Substance: RIFABUTIN
  7. AZITHROMYCIN [Concomitant]
     Active Substance: AZITHROMYCIN
  8. CULTURELLE [Concomitant]
     Active Substance: LACTOBACILLUS RHAMNOSUS

REACTIONS (3)
  - Pneumonia viral [None]
  - Chest pain [None]
  - Activities of daily living decreased [None]

NARRATIVE: CASE EVENT DATE: 20250930
